FAERS Safety Report 9651074 (Version 1)
Quarter: 2013Q4

REPORT INFORMATION
  Report Type: Spontaneous
  Country: US (occurrence: US)
  Receive Date: 20131029
  Receipt Date: 20131029
  Transmission Date: 20140711
  Serious: Yes (Other)
  Sender: FDA-Public Use
  Company Number: US-PFIZER INC-2013307022

PATIENT
  Sex: Male

DRUGS (1)
  1. ADVIL PM [Suspect]
     Dosage: 4 CAPSULES IN A DAY

REACTIONS (3)
  - Overdose [Unknown]
  - Haematochezia [Unknown]
  - Gastric haemorrhage [Unknown]
